FAERS Safety Report 9419616 (Version 5)
Quarter: 2013Q4

REPORT INFORMATION
  Report Type: Spontaneous
  Country: US (occurrence: US)
  Receive Date: 20130725
  Receipt Date: 20131202
  Transmission Date: 20140711
  Serious: Yes (Hospitalization, Other)
  Sender: FDA-Public Use
  Company Number: US-009507513-1204USA01792

PATIENT
  Sex: Female
  Weight: 65.76 kg

DRUGS (5)
  1. FOSAMAX [Suspect]
     Indication: OSTEOPENIA
     Dosage: 10 MG, UNK
     Route: 048
     Dates: start: 20011017, end: 20020823
  2. FOSAMAX [Suspect]
     Dosage: 70 MG, UNK
     Route: 048
     Dates: start: 20020823, end: 20081213
  3. FOSAMAX [Suspect]
     Indication: OSTEOPOROSIS
     Dosage: UNK
     Route: 048
  4. ALENDRONATE SODIUM [Suspect]
     Indication: OSTEOPENIA
     Dosage: 70 MG, UNK
     Route: 048
     Dates: start: 20081213, end: 20100405
  5. CALCIUM (UNSPECIFIED) (+) VITAMIN D (UNSPECIFIED) [Concomitant]
     Dosage: 800 MG, QD
     Dates: start: 2000

REACTIONS (25)
  - Intramedullary rod insertion [Unknown]
  - Spinal laminectomy [Unknown]
  - Knee arthroplasty [Unknown]
  - Spinal fusion surgery [Unknown]
  - Femur fracture [Unknown]
  - Low turnover osteopathy [Unknown]
  - Calcium deficiency [Unknown]
  - Sleep disorder therapy [Unknown]
  - Hypertension [Unknown]
  - Osteoarthritis [Unknown]
  - Arthritis [Unknown]
  - Joint effusion [Unknown]
  - Scoliosis [Unknown]
  - Lumbar spinal stenosis [Unknown]
  - Arthroscopy [Unknown]
  - Staphylococcal infection [Unknown]
  - Hyperlipidaemia [Unknown]
  - Knee deformity [Unknown]
  - Fatigue [Unknown]
  - Meniscus operation [Recovering/Resolving]
  - Exostosis [Unknown]
  - Myositis [Unknown]
  - Pain in extremity [Unknown]
  - Musculoskeletal pain [Unknown]
  - Arthralgia [Unknown]
